FAERS Safety Report 5469016-0 (Version None)
Quarter: 2007Q3

REPORT INFORMATION
  Report Type: 
  Country: None (occurrence: None)
  Receive Date: 20070820
  Receipt Date: 20070619
  Transmission Date: 20080115
  Serious: No
  Sender: FDA-Public Use
  Company Number: WAES 0706USA03322

PATIENT
  Age: 75 Year
  Sex: Female

DRUGS (10)
  1. JANUVIA [Suspect]
     Indication: DIABETES MELLITUS
     Dosage: 100 MG/DAILY/PO
     Route: 048
     Dates: start: 20070501, end: 20070601
  2. AVANDIA [Concomitant]
  3. FOSAMAX [Concomitant]
  4. SYNTHROID [Concomitant]
  5. ALLOPURINOL [Concomitant]
  6. ASPIRIN [Concomitant]
  7. CALCIUM [Concomitant]
  8. GLYBURIDE [Concomitant]
  9. PILOCARPINE [Concomitant]
  10. VITAMINS [Concomitant]

REACTIONS (3)
  - NASAL CONGESTION [None]
  - PALPITATIONS [None]
  - RHINORRHOEA [None]
